FAERS Safety Report 5108921-1 (Version None)
Quarter: 2006Q3

REPORT INFORMATION
  Report Type: 
  Country: None (occurrence: None)
  Receive Date: 20060920
  Receipt Date: 20060213
  Transmission Date: 20061208
  Serious: Yes (Death, Hospitalization, Other)
  Sender: FDA-Public Use
  Company Number: US-BRISTOL-MYERS SQUIBB COMPANY-13280250

PATIENT
  Age: 67 Year
  Sex: Female

DRUGS (9)
  1. DASATINIB [Suspect]
     Indication: CHRONIC MYELOID LEUKAEMIA
     Dosage: INTERRUPTED ON 2-FEB-06
     Route: 048
     Dates: start: 20060131, end: 20060202
  2. ZESTRIL [Concomitant]
     Dates: start: 20060101
  3. K-DUR 10 [Concomitant]
     Dates: start: 20060123
  4. LASIX [Concomitant]
     Dates: start: 20060123
  5. NEXIUM [Concomitant]
     Dates: start: 20060123
  6. RESTORIL [Concomitant]
     Dates: start: 20060123
  7. BENADRYL [Concomitant]
     Dates: start: 20060130, end: 20060130
  8. FOSAMAX [Concomitant]
     Dates: start: 20060101
  9. ORTHO-NOVUM [Concomitant]
     Dates: start: 20060101

REACTIONS (8)
  - ARRHYTHMIA SUPRAVENTRICULAR [None]
  - ATELECTASIS [None]
  - CARDIAC FAILURE CONGESTIVE [None]
  - CEREBROVASCULAR ACCIDENT [None]
  - DYSPNOEA [None]
  - PANCYTOPENIA [None]
  - RENAL FAILURE [None]
  - SEPSIS [None]
